FAERS Safety Report 13031633 (Version 2)
Quarter: 2016Q4

REPORT INFORMATION
  Report Type: Spontaneous
  Country: BG (occurrence: BG)
  Receive Date: 20161215
  Receipt Date: 20161227
  Transmission Date: 20170207
  Serious: Yes (Other)
  Sender: FDA-Public Use
  Company Number: BG-ASTRAZENECA-2016SF30821

PATIENT
  Age: 14 Year
  Sex: Male

DRUGS (1)
  1. PULMICORT TURBUHALER [Suspect]
     Active Substance: BUDESONIDE
     Indication: ASTHMA
     Dosage: 200.0UG UNKNOWN
     Route: 055

REACTIONS (5)
  - Pyrexia [Unknown]
  - Drug ineffective [Unknown]
  - Asthma [Unknown]
  - Dermatitis allergic [Unknown]
  - Product use issue [Unknown]
